FAERS Safety Report 6120672-3 (Version None)
Quarter: 2009Q1

REPORT INFORMATION
  Report Type: 
  Country: None (occurrence: None)
  Receive Date: 20090312
  Receipt Date: 20090312
  Transmission Date: 20090719
  Serious: Yes (Other)
  Sender: FDA-Public Use
  Company Number: None

PATIENT
  Age: 58 Year
  Sex: Female
  Weight: 72.5755 kg

DRUGS (2)
  1. RECLAST [Suspect]
     Indication: OSTEOPOROSIS
     Dosage: ONE IV INJECTION ONE TIME PER YEAR IV DRIP
     Route: 041
     Dates: start: 20090130, end: 20090130
  2. TYLENOL [Concomitant]

REACTIONS (7)
  - BACK PAIN [None]
  - INFLUENZA LIKE ILLNESS [None]
  - ODYNOPHAGIA [None]
  - PAIN IN JAW [None]
  - QUALITY OF LIFE DECREASED [None]
  - SENSITIVITY OF TEETH [None]
  - TOOTHACHE [None]
